FAERS Safety Report 11135741 (Version 1)
Quarter: 2015Q2

REPORT INFORMATION
  Report Type: Report from Study
  Country: BR (occurrence: BR)
  Receive Date: 20150526
  Receipt Date: 20150526
  Transmission Date: 20150821
  Serious: Yes (Hospitalization, Disabling, Other)
  Sender: FDA-Public Use
  Company Number: BR-ABBVIE-15K-020-1393191-00

PATIENT
  Age: 50 Year
  Sex: Female

DRUGS (12)
  1. HUMIRA [Suspect]
     Active Substance: ADALIMUMAB
     Indication: RHEUMATOID ARTHRITIS
     Route: 065
     Dates: start: 20131211
  2. REPOFLOR [Concomitant]
     Indication: GASTROINTESTINAL DISORDER
     Route: 048
  3. HUMECTOL D [Concomitant]
     Indication: PRODUCT USED FOR UNKNOWN INDICATION
     Route: 048
     Dates: start: 2000
  4. COLLAGEN [Concomitant]
     Active Substance: COLLAGEN
     Indication: OSTEOARTHRITIS
     Dates: start: 2013
  5. PREGABALIN. [Concomitant]
     Active Substance: PREGABALIN
     Indication: SPINAL DISORDER
     Route: 048
     Dates: start: 201408
  6. PREDNISONE. [Concomitant]
     Active Substance: PREDNISONE
     Indication: ARTHRITIS
     Route: 048
     Dates: start: 2013
  7. ROSUVASTATIN CALCIUM. [Concomitant]
     Active Substance: ROSUVASTATIN CALCIUM
     Indication: BLOOD CHOLESTEROL ABNORMAL
     Route: 048
     Dates: start: 2003
  8. TRAMADOL HYDROCHLORID/PARACETAMOL [Concomitant]
     Indication: PAIN
     Dosage: TRAMADOL HYDROCHLORIDE/PARACETAMOL (37.5 MG + 305 MG), ONE TABLET EVERY SIX HOURS
     Route: 048
     Dates: start: 201504
  9. LOSARTAN [Concomitant]
     Active Substance: LOSARTAN
     Indication: HYPERTENSION
     Route: 048
     Dates: start: 2003
  10. ROXFLAN [Concomitant]
     Active Substance: AMLODIPINE BESYLATE
     Indication: HYPERTENSION
     Dates: start: 201407
  11. CALCIUM CARBONATE / VITAMIN D3 [Concomitant]
     Indication: BONE DISORDER
     Dosage: FORM STRENGTH: 1000MG / 800MG
     Route: 048
     Dates: start: 2013
  12. PANTOPRAZOLE [Concomitant]
     Active Substance: PANTOPRAZOLE SODIUM
     Indication: GASTRIC DISORDER
     Route: 048

REACTIONS (5)
  - Cataract [Recovered/Resolved]
  - Spinal disorder [Not Recovered/Not Resolved]
  - Memory impairment [Not Recovered/Not Resolved]
  - Confusional state [Not Recovered/Not Resolved]
  - Gait disturbance [Not Recovered/Not Resolved]

NARRATIVE: CASE EVENT DATE: 201403
